FAERS Safety Report 9714136 (Version 1)
Quarter: 2013Q4

REPORT INFORMATION
  Report Type: Spontaneous
  Country: US (occurrence: US)
  Receive Date: 20131126
  Receipt Date: 20131126
  Transmission Date: 20140711
  Serious: No
  Sender: FDA-Public Use
  Company Number: US-GILEAD-2008-0019087

PATIENT
  Sex: Female
  Weight: 95.25 kg

DRUGS (15)
  1. LETAIRIS [Suspect]
     Indication: PULMONARY ARTERIAL HYPERTENSION
     Route: 048
     Dates: start: 20081114
  2. LASIX [Concomitant]
  3. DIOVAN [Concomitant]
  4. WARFARIN [Concomitant]
  5. DIGOXIN [Concomitant]
  6. CARTIA XT [Concomitant]
  7. GLIPIZIDE [Concomitant]
  8. HUMALOG INSULIN [Concomitant]
  9. LANTUS INSULIN [Concomitant]
  10. PREVACID [Concomitant]
  11. CRESTOR [Concomitant]
  12. OMEGA 3 [Concomitant]
  13. FERROUS SULFATE [Concomitant]
  14. VITAMIN D [Concomitant]
  15. FOLIC ACID [Concomitant]

REACTIONS (3)
  - Palpitations [None]
  - Swelling face [None]
  - Dyspnoea [None]
